FAERS Safety Report 7203901-4 (Version None)
Quarter: 2010Q4

REPORT INFORMATION
  Report Type: 
  Country: None (occurrence: None)
  Receive Date: 20101220
  Receipt Date: 20101213
  Transmission Date: 20110411
  Serious: Yes (Other)
  Sender: FDA-Public Use
  Company Number: DSA_44501_2010

PATIENT
  Age: 59 Year
  Sex: Female

DRUGS (1)
  1. XENAZINE [Suspect]
     Indication: TARDIVE DYSKINESIA
     Dosage: DF
     Dates: start: 20100901, end: 20101101

REACTIONS (3)
  - DEPRESSION [None]
  - GRIMACING [None]
  - SUICIDAL IDEATION [None]
